FAERS Safety Report 13352859 (Version 1)
Quarter: 2017Q1

REPORT INFORMATION
  Report Type: Spontaneous
  Country: US (occurrence: US)
  Receive Date: 20170320
  Receipt Date: 20170320
  Transmission Date: 20170429
  Serious: Yes (Death, Hospitalization)
  Sender: FDA-Public Use
  Company Number: US-IPCA LABORATORIES LIMITED-IPC201703-000249

PATIENT
  Age: 70 Year
  Sex: Female

DRUGS (4)
  1. AZATHIOPRINE. [Interacting]
     Active Substance: AZATHIOPRINE
     Indication: RENAL TRANSPLANT
  2. ALLOPURINOL. [Suspect]
     Active Substance: ALLOPURINOL
     Indication: GOUT
  3. PREDNISONE. [Concomitant]
     Active Substance: PREDNISONE
  4. TACROLIMUS. [Concomitant]
     Active Substance: TACROLIMUS

REACTIONS (7)
  - Acute respiratory failure [Unknown]
  - Drug interaction [Unknown]
  - Pseudomonal bacteraemia [Not Recovered/Not Resolved]
  - Pancytopenia [Unknown]
  - Septic shock [Fatal]
  - Cardiac arrest [Fatal]
  - Clostridium bacteraemia [Not Recovered/Not Resolved]
